FAERS Safety Report 4640273-3 (Version None)
Quarter: 2005Q2

REPORT INFORMATION
  Report Type: 
  Country: None (occurrence: None)
  Receive Date: 20050420
  Receipt Date: 20050413
  Transmission Date: 20051028
  Serious: Yes (Other)
  Sender: FDA-Public Use
  Company Number: FR-GLAXOSMITHKLINE-B0378145A

PATIENT
  Age: 24 Year
  Sex: Male

DRUGS (1)
  1. ZYBAN [Suspect]
     Indication: EX-SMOKER
     Route: 048
     Dates: start: 20050301, end: 20050301

REACTIONS (4)
  - ANGIONEUROTIC OEDEMA [None]
  - ARTHRALGIA [None]
  - BLOOD IMMUNOGLOBULIN E INCREASED [None]
  - PRURITUS [None]
